FAERS Safety Report 5080533-8 (Version None)
Quarter: 2006Q3

REPORT INFORMATION
  Report Type: 
  Country: None (occurrence: None)
  Receive Date: 20060804
  Receipt Date: 20060801
  Transmission Date: 20061208
  Serious: Yes (Other)
  Sender: FDA-Public Use
  Company Number: 060412-0000336

PATIENT
  Age: 44 Year
  Sex: Female
  Weight: 54.4316 kg

DRUGS (8)
  1. PANHEMATIN [Suspect]
     Indication: PORPHYRIA ACUTE
     Dosage: 313 MG; Q24X5-10 DAYS PRN; IV
     Route: 042
     Dates: start: 19960101, end: 20060411
  2. LUPRON [Suspect]
     Indication: ARTIFICIAL MENOPAUSE
     Dosage: QD; INJ
     Dates: start: 19940101, end: 19990101
  3. PREMARIN [Concomitant]
  4. METHADONE HCL [Concomitant]
  5. ZANTAC [Concomitant]
  6. MORPHINE [Concomitant]
  7. PHENERGAN HCL [Concomitant]
  8. FOSAMAX [Concomitant]

REACTIONS (2)
  - HAEMOSIDEROSIS [None]
  - IMMUNE SYSTEM DISORDER [None]
